FAERS Safety Report 10540288 (Version 1)
Quarter: 2014Q4

REPORT INFORMATION
  Report Type: Spontaneous
  Country: US (occurrence: None)
  Receive Date: 20141010
  Receipt Date: 20141010
  Transmission Date: 20150529
  Serious: Yes (Other)
  Sender: FDA-Public Use
  Company Number: 2227451

PATIENT
  Age: 69 Year
  Sex: Male
  Weight: 96.36 kg

DRUGS (6)
  1. (ATORVASTATIN) [Concomitant]
  2. (PROTONIX) [Concomitant]
  3. METHOTREXATE (METHOTREXATE SODIUM) [Suspect]
     Active Substance: METHOTREXATE SODIUM
     Indication: CENTRAL NERVOUS SYSTEM NEOPLASM
     Dosage: 7.56 G GRAM9S), UNKNOWN, INTRAVENOUS DRIP
     Route: 041
     Dates: start: 20140218, end: 20140218
  4. (FLOMAX /00889901/) [Concomitant]
  5. (ZOFRAN /00955301/) [Concomitant]
  6. (AMLODIPINE) [Concomitant]

REACTIONS (1)
  - Blood creatinine increased [None]

NARRATIVE: CASE EVENT DATE: 20140219
